FAERS Safety Report 17367276 (Version 2)
Quarter: 2020Q2

REPORT INFORMATION
  Report Type: Report from Study
  Country: GT (occurrence: GT)
  Receive Date: 20200204
  Receipt Date: 20200609
  Transmission Date: 20200713
  Serious: Yes (Death, Other)
  Sender: FDA-Public Use
  Company Number: GT-BAYER-2019-233550

PATIENT
  Age: 59 Year
  Sex: Male

DRUGS (2)
  1. NEXAVAR [Suspect]
     Active Substance: SORAFENIB
     Indication: HEPATOCELLULAR CARCINOMA
     Dosage: 400 MG PER DAY (200 MG IN THE MORNING AND 200 MG AT NIGHT)
     Route: 048
     Dates: start: 20190928, end: 20200124
  2. NEXAVAR [Suspect]
     Active Substance: SORAFENIB
     Indication: HEPATOCELLULAR CARCINOMA
     Dosage: UNK
     Dates: start: 2020

REACTIONS (5)
  - Hepatic failure [Fatal]
  - General physical health deterioration [Recovered/Resolved with Sequelae]
  - Asthenia [Recovering/Resolving]
  - Apathy [Recovering/Resolving]
  - Off label use [None]

NARRATIVE: CASE EVENT DATE: 20190928
